FAERS Safety Report 24014819 (Version 1)
Quarter: 2024Q2

REPORT INFORMATION
  Report Type: Spontaneous
  Country: US (occurrence: US)
  Receive Date: 20240626
  Receipt Date: 20240626
  Transmission Date: 20240716
  Serious: Yes (Hospitalization)
  Sender: FDA-Public Use
  Company Number: US-BRISTOL-MYERS SQUIBB COMPANY-2024-101470

PATIENT
  Age: 74 Year
  Sex: Female
  Weight: 100.7 kg

DRUGS (1)
  1. POMALYST [Suspect]
     Active Substance: POMALIDOMIDE
     Indication: Plasma cell myeloma
     Dosage: 2 MG CAPSULE DAILY FOR 14 DAYS ON THEN 7 DAYS OFF
     Route: 048

REACTIONS (2)
  - Dehydration [Unknown]
  - Off label use [Unknown]
